FAERS Safety Report 17102129 (Version 1)
Quarter: 2019Q4

REPORT INFORMATION
  Report Type: Spontaneous
  Country: NL (occurrence: NL)
  Receive Date: 20191202
  Receipt Date: 20191202
  Transmission Date: 20200122
  Serious: Yes (Disabling, Other)
  Sender: FDA-Public Use
  Company Number: NL-JNJFOC-20191140809

PATIENT
  Age: 87 Year
  Sex: Female

DRUGS (7)
  1. BISOPROLOLFUMARAAT [Concomitant]
     Active Substance: BISOPROLOL FUMARATE
     Dosage: 2 MG, BID
  2. RIVAROXABAN [Suspect]
     Active Substance: RIVAROXABAN
     Indication: ATRIAL FIBRILLATION
     Dosage: 20 MG, QD
     Route: 048
     Dates: start: 20170515
  3. SIMVASTATINE [Concomitant]
     Active Substance: SIMVASTATIN
     Dosage: 20 MG, QD
  4. LEKOVIT CA [Concomitant]
     Active Substance: CALCIUM CARBONATE\CHOLECALCIFEROL
     Dosage: 1 DF, QD
  5. METFORMINE HCL [Concomitant]
     Active Substance: METFORMIN HYDROCHLORIDE
     Dosage: 500 MG, BID
  6. MONO CEDOCARD [Concomitant]
     Active Substance: ISOSORBIDE MONONITRATE
     Dosage: 25 MG, UNK
  7. RASILEZ [Concomitant]
     Active Substance: ALISKIREN
     Dosage: 150 MG, QD

REACTIONS (5)
  - Haemarthrosis [Unknown]
  - Haemarthrosis [Unknown]
  - Tendon rupture [Unknown]
  - Tendon rupture [Unknown]
  - Haemarthrosis [Unknown]

NARRATIVE: CASE EVENT DATE: 201808
